FAERS Safety Report 10527569 (Version 1)
Quarter: 2014Q4

REPORT INFORMATION
  Report Type: Spontaneous
  Country: GB (occurrence: None)
  Receive Date: 20141016
  Receipt Date: 20141016
  Transmission Date: 20150528
  Serious: Yes (Other)
  Sender: FDA-Public Use
  Company Number: 2014AJA00032

PATIENT
  Age: 19 Year
  Sex: Female

DRUGS (2)
  1. LACOSAMIDE - 100MG/DAY [Concomitant]
  2. LEVETIRACETAM. [Suspect]
     Active Substance: LEVETIRACETAM
     Indication: PARTIAL SEIZURES
     Dosage: 1500MG/DAY

REACTIONS (1)
  - Angioedema [None]

NARRATIVE: CASE EVENT DATE: 20140706
